FAERS Safety Report 4361062-3 (Version None)
Quarter: 2004Q2

REPORT INFORMATION
  Report Type: 
  Country: None (occurrence: None)
  Receive Date: 20040517
  Receipt Date: 20040503
  Transmission Date: 20050107
  Serious: Yes (Death)
  Sender: FDA-Public Use
  Company Number: BE-JNJFOC-20040500658

PATIENT
  Age: 4 Month
  Sex: Male

DRUGS (1)
  1. PREPULSID (CISAPRIDE) SUSPENSION [Suspect]
     Indication: GASTROOESOPHAGEAL REFLUX DISEASE
     Dosage: 0.6 MG, 4 IN 1 DAY
     Dates: start: 20031215, end: 20040105

REACTIONS (5)
  - DRUG INEFFECTIVE [None]
  - DYSPNOEA [None]
  - HYPOXIA [None]
  - LUNG DISORDER [None]
  - TACHYPNOEA [None]
